FAERS Safety Report 6750895-1 (Version None)
Quarter: 2010Q2

REPORT INFORMATION
  Report Type: 
  Country: None (occurrence: None)
  Receive Date: 20100602
  Receipt Date: 20100527
  Transmission Date: 20101027
  Serious: Yes (Hospitalization)
  Sender: FDA-Public Use
  Company Number: US-BAYER-201022758NA

PATIENT
  Sex: Female

DRUGS (1)
  1. BETASERON [Suspect]
     Indication: DRUG USE FOR UNKNOWN INDICATION
     Route: 065
     Dates: start: 20030101

REACTIONS (4)
  - BALANCE DISORDER [None]
  - GASTRIC DISORDER [None]
  - THINKING ABNORMAL [None]
  - VISUAL IMPAIRMENT [None]
